FAERS Safety Report 8178437-7 (Version None)
Quarter: 2012Q1

REPORT INFORMATION
  Report Type: 
  Country: None (occurrence: None)
  Receive Date: 20120301
  Receipt Date: 20120227
  Transmission Date: 20120608
  Serious: No
  Sender: FDA-Public Use
  Company Number: US-PFIZER INC-2012051737

PATIENT
  Sex: Female
  Weight: 85.714 kg

DRUGS (7)
  1. EPIPEN [Concomitant]
     Indication: FOOD ALLERGY
     Dosage: UNK
  2. DIOVAN HCT [Concomitant]
     Indication: HYPERTENSION
     Dosage: 160/25 MG, DAILY
  3. LOPRESSOR [Concomitant]
     Indication: HYPERTENSION
     Dosage: 50 MG, 3X/DAY
  4. EPIPEN [Concomitant]
     Indication: DRUG HYPERSENSITIVITY
  5. BENZYLPENICILLIN POTASSIUM [Suspect]
     Dosage: UNK
  6. EPIPEN [Concomitant]
  7. EPIPEN [Concomitant]
     Indication: IODINE ALLERGY

REACTIONS (2)
  - DYSPNOEA [None]
  - HYPERSENSITIVITY [None]
